FAERS Safety Report 18334779 (Version 1)
Quarter: 2020Q4

REPORT INFORMATION
  Report Type: Other
  Country: HR (occurrence: HR)
  Receive Date: 20201001
  Receipt Date: 20201001
  Transmission Date: 20210113
  Serious: Yes (Other)
  Sender: FDA-Public Use
  Company Number: HR-COLLEGIUM PHARMACEUTICAL, INC.-2020CGM00240

PATIENT
  Sex: Male

DRUGS (2)
  1. NUCYNTA [Suspect]
     Active Substance: TAPENTADOL HYDROCHLORIDE
     Dosage: 2 DF, 1X/DAY
     Route: 048
     Dates: start: 20200826, end: 20200826
  2. KETONAL [KETOCONAZOLE] [Suspect]
     Active Substance: KETOCONAZOLE
     Dosage: 6 DF, 1X/DAY
     Route: 048
     Dates: start: 20200826, end: 20200826

REACTIONS (3)
  - Toxicity to various agents [Unknown]
  - Intentional overdose [Unknown]
  - Suicide attempt [Unknown]

NARRATIVE: CASE EVENT DATE: 20200826
